FAERS Safety Report 4833015-X (Version None)
Quarter: 2005Q4

REPORT INFORMATION
  Report Type: 
  Country: None (occurrence: None)
  Receive Date: 20051121
  Receipt Date: 20051027
  Transmission Date: 20060501
  Serious: Yes (Hospitalization, Disabling)
  Sender: FDA-Public Use
  Company Number: PHRM2005FR02852

PATIENT
  Age: 66 Year
  Sex: Male
  Weight: 62 kg

DRUGS (5)
  1. ZOMETA [Suspect]
     Indication: METASTASES TO BONE
     Dosage: 4 MG EVERY THREE WEEKS
     Route: 042
     Dates: start: 20030601, end: 20050825
  2. NOVANTRONE [Concomitant]
     Indication: PROSTATE CANCER METASTATIC
     Dosage: UNK, UNK
     Dates: start: 20030601, end: 20040801
  3. TAXOTERE [Concomitant]
     Indication: PROSTATE CANCER METASTATIC
     Dates: start: 20040801, end: 20050201
  4. ESTRACYT /SWE/ [Concomitant]
     Indication: PROSTATE CANCER METASTATIC
     Dosage: 2 DF, BID
     Route: 048
     Dates: start: 20050301, end: 20050801
  5. DIURETICS [Concomitant]

REACTIONS (6)
  - CONDITION AGGRAVATED [None]
  - FEEDING DISORDER [None]
  - ISCHAEMIC CARDIOMYOPATHY [None]
  - OSTEITIS [None]
  - OSTEONECROSIS [None]
  - PAIN IN JAW [None]
